FAERS Safety Report 7908790-8 (Version None)
Quarter: 2011Q4

REPORT INFORMATION
  Report Type: 
  Country: None (occurrence: None)
  Receive Date: 20111111
  Receipt Date: 20111102
  Transmission Date: 20120403
  Serious: No
  Sender: FDA-Public Use
  Company Number: US-PFIZER INC-2011261550

PATIENT
  Sex: Male
  Weight: 90.703 kg

DRUGS (7)
  1. TOPROL-XL [Concomitant]
     Indication: BLOOD CHOLESTEROL INCREASED
     Dosage: 100 MG, DAILY IN EVENING
     Dates: start: 20110829
  2. LIPITOR [Suspect]
     Indication: BLOOD CHOLESTEROL INCREASED
     Dosage: 80 MG, DAILY
     Dates: start: 20110829
  3. TRANEXAMIC ACID [Concomitant]
     Indication: BLOOD CHOLESTEROL INCREASED
     Dosage: 20 MG, 2X/DAY
     Dates: start: 20110829
  4. PLAVIX [Concomitant]
     Indication: BLOOD CHOLESTEROL INCREASED
     Dosage: 75 MG, DAILY
     Dates: start: 20110829
  5. ACETYLSALICYLIC ACID [Concomitant]
     Indication: BLOOD CHOLESTEROL INCREASED
     Dosage: 81 MG, DAILY IN EVENING
     Dates: start: 20110829
  6. WARFARIN SODIUM [Concomitant]
     Indication: BLOOD CHOLESTEROL INCREASED
     Dosage: 7.5 MG, DAILY IN EVENING
     Dates: start: 20110829
  7. ZESTRIL [Concomitant]
     Indication: BLOOD CHOLESTEROL INCREASED
     Dosage: 5 MG, DAILY
     Dates: start: 20110829

REACTIONS (2)
  - MYALGIA [None]
  - PYREXIA [None]
